FAERS Safety Report 22364408 (Version 1)
Quarter: 2023Q2

REPORT INFORMATION
  Report Type: Spontaneous
  Country: US (occurrence: US)
  Receive Date: 20230525
  Receipt Date: 20230525
  Transmission Date: 20230722
  Serious: Yes (Other)
  Sender: FDA-Public Use
  Company Number: US-009507513-2305USA007627

PATIENT
  Sex: Female

DRUGS (2)
  1. KEYTRUDA [Suspect]
     Active Substance: PEMBROLIZUMAB
     Indication: Endometrial cancer
     Dosage: UNK
  2. LENVATINIB MESYLATE [Suspect]
     Active Substance: LENVATINIB MESYLATE
     Indication: Endometrial cancer
     Dosage: 20 MILLIGRAM
     Route: 048
     Dates: start: 20220929

REACTIONS (24)
  - Transfusion [Unknown]
  - Radiotherapy [Unknown]
  - Hypersensitivity [Unknown]
  - Weight decreased [Unknown]
  - Asthenia [Unknown]
  - Alopecia [Unknown]
  - Hypertension [Not Recovered/Not Resolved]
  - Anxiety [Unknown]
  - Abdominal pain [Unknown]
  - Nausea [Not Recovered/Not Resolved]
  - Dyspnoea [Not Recovered/Not Resolved]
  - COVID-19 [Unknown]
  - Anaemia [Unknown]
  - Intervertebral disc degeneration [Unknown]
  - Hernia [Unknown]
  - Troponin increased [Unknown]
  - Insomnia [Unknown]
  - Malaise [Unknown]
  - Skin atrophy [Not Recovered/Not Resolved]
  - Decreased appetite [Not Recovered/Not Resolved]
  - Gingival pain [Not Recovered/Not Resolved]
  - Headache [Not Recovered/Not Resolved]
  - Fatigue [Not Recovered/Not Resolved]
  - Pain [Not Recovered/Not Resolved]
